FAERS Safety Report 20419826 (Version 4)
Quarter: 2023Q1

REPORT INFORMATION
  Report Type: Report from Study
  Country: US (occurrence: US)
  Receive Date: 20220203
  Receipt Date: 20230106
  Transmission Date: 20230417
  Serious: No
  Sender: FDA-Public Use
  Company Number: US-Ipsen Biopharmaceuticals, Inc.-2022-02154

PATIENT
  Age: 76 Year
  Sex: Male

DRUGS (1)
  1. SOMATULINE DEPOT [Suspect]
     Active Substance: LANREOTIDE ACETATE
     Indication: Carcinoid tumour of the small bowel
     Dosage: 120 MG, EVERY 4 WEEKS
     Route: 058
     Dates: start: 20211109

REACTIONS (8)
  - Diarrhoea [Recovering/Resolving]
  - Injection site pain [Recovering/Resolving]
  - Depression [Recovering/Resolving]
  - Fatigue [Recovering/Resolving]
  - Bowel movement irregularity [Recovering/Resolving]
  - Injection site pain [Recovering/Resolving]
  - Unevaluable event [Recovering/Resolving]
  - Transcatheter arterial chemoembolisation [Unknown]

NARRATIVE: CASE EVENT DATE: 20211101
